FAERS Safety Report 9169175 (Version 3)
Quarter: 2013Q1

REPORT INFORMATION
  Report Type: Spontaneous
  Country: FR (occurrence: FR)
  Receive Date: 20130318
  Receipt Date: 20130326
  Transmission Date: 20140127
  Serious: Yes (Other)
  Sender: FDA-Public Use
  Company Number: FR-ROCHE-1202731

PATIENT
  Age: 64 Year
  Sex: Male
  Weight: 76.5 kg

DRUGS (7)
  1. MIRCERA [Suspect]
     Indication: NEPHROGENIC ANAEMIA
     Route: 042
     Dates: start: 201210
  2. MIRCERA [Suspect]
     Route: 058
  3. MIRCERA [Suspect]
     Route: 042
     Dates: start: 20130211, end: 20130212
  4. ZYLORIC [Concomitant]
     Indication: HYPERURICAEMIA
     Route: 048
     Dates: end: 20130307
  5. KARDEGIC [Concomitant]
     Route: 048
     Dates: end: 20130307
  6. HYPERIUM [Concomitant]
     Indication: HYPERTENSION
     Dosage: 1 DF
     Route: 048
  7. AMLOR [Concomitant]
     Indication: HYPERTENSION
     Dosage: 1 DF
     Route: 048

REACTIONS (1)
  - Aplastic anaemia [Not Recovered/Not Resolved]
